FAERS Safety Report 11512543 (Version 1)
Quarter: 2015Q3

REPORT INFORMATION
  Report Type: Spontaneous
  Country: US (occurrence: None)
  Receive Date: 20150915
  Receipt Date: 20150915
  Transmission Date: 20151125
  Serious: No
  Sender: FDA-Public Use
  Company Number: None

PATIENT
  Age: 60 Year
  Sex: Female
  Weight: 68.04 kg

DRUGS (2)
  1. CEPHALEXIN 500 MG BELCHER PHARMACEUTICALS/VIRTUS PHA [Suspect]
     Active Substance: CEPHALEXIN
     Indication: URINARY TRACT INFECTION
     Route: 048
     Dates: start: 20150905, end: 20150909
  2. ZYRTEC [Concomitant]
     Active Substance: CETIRIZINE HYDROCHLORIDE

REACTIONS (4)
  - Feeling abnormal [None]
  - Throat tightness [None]
  - No reaction on previous exposure to drug [None]
  - Paraesthesia oral [None]

NARRATIVE: CASE EVENT DATE: 20150909
